FAERS Safety Report 19380765 (Version 1)
Quarter: 2021Q2

REPORT INFORMATION
  Report Type: Spontaneous
  Country: DE (occurrence: DE)
  Receive Date: 20210607
  Receipt Date: 20210607
  Transmission Date: 20210717
  Serious: Yes (Hospitalization)
  Sender: FDA-Public Use
  Company Number: DE-SA-2021SA186013

PATIENT
  Age: 81 Year
  Sex: Male

DRUGS (12)
  1. METAMIZOLE [Concomitant]
     Active Substance: METAMIZOLE
     Dosage: 500 MG, IF NECESSARY IN THE MORNING AND AT NIGHT, TABLETS
  2. SPIRIVA [Concomitant]
     Active Substance: TIOTROPIUM BROMIDE MONOHYDRATE
     Dosage: 18 (UNITS NOT CLEAR), 1?0?0?0, CAPSULES FOR INHALATION
     Route: 055
  3. CLOPIDOGREL BISULFATE. [Suspect]
     Active Substance: CLOPIDOGREL BISULFATE
     Dosage: 75 MG, 1?0?0?0, TABLETS
  4. METHOTREXATE. [Suspect]
     Active Substance: METHOTREXATE
     Dosage: 20 MG / ML, 1 TIME A WEEK IN THE MORNING
  5. TIOBLIS [Concomitant]
     Active Substance: ATORVASTATIN CALCIUM\EZETIMIBE
     Dosage: 10 | 10 MG, 0?0?1?0, TABLETS
  6. IVABRADIN [Concomitant]
     Active Substance: IVABRADINE
     Dosage: 5 MG, 1?0?1?0, TABLETS
  7. BUDESONID [Concomitant]
     Active Substance: BUDESONIDE
     Dosage: 1?0?1?0, INHALATION POWDER
     Route: 055
  8. VALSARTAN. [Concomitant]
     Active Substance: VALSARTAN
     Dosage: 80 MG, 1?0?0?0, TABLETS
  9. FOLSAEURE [Concomitant]
     Active Substance: FOLIC ACID
     Dosage: 5 MG, 1 TIME A WEEK IN THE MORNING, TABLETS
  10. VIGANTOLETTEN [Concomitant]
     Active Substance: CHOLECALCIFEROL
     Dosage: 25 (UNITS NOT CLEAR), 1?0?0?0, TABLETS
  11. PREDNISOLONE. [Suspect]
     Active Substance: PREDNISOLONE
     Dosage: 5 MG, 1?0?0?0, TABLETS
  12. PANTOPRAZOLE [Concomitant]
     Active Substance: PANTOPRAZOLE
     Dosage: 40 MG, 1?0?0?0, TABLETS

REACTIONS (1)
  - Dyspnoea [Unknown]

NARRATIVE: CASE EVENT DATE: 20210302
